FAERS Safety Report 9467577 (Version 1)
Quarter: 2013Q3

REPORT INFORMATION
  Report Type: Report from Study
  Country: JP (occurrence: JP)
  Receive Date: 20130821
  Receipt Date: 20130821
  Transmission Date: 20140515
  Serious: Yes (Hospitalization)
  Sender: FDA-Public Use
  Company Number: JP-GENZYME-THYM-1004038

PATIENT
  Age: 66 Year
  Sex: Male
  Weight: 76 kg

DRUGS (2)
  1. THYMOGLOBULIN [Suspect]
     Indication: APLASTIC ANAEMIA
     Dosage: 62.5 MG, QD (OVER 18 HOURS)
     Route: 065
     Dates: start: 20101104, end: 20101109
  2. NEORAL [Concomitant]
     Indication: APLASTIC ANAEMIA
     Dosage: UNK
     Route: 065

REACTIONS (2)
  - Febrile neutropenia [Recovered/Resolved]
  - Oral herpes [Recovered/Resolved]
